FAERS Safety Report 7471828-9 (Version None)
Quarter: 2011Q2

REPORT INFORMATION
  Report Type: 
  Country: None (occurrence: None)
  Receive Date: 20110511
  Receipt Date: 20100514
  Transmission Date: 20111010
  Serious: No
  Sender: FDA-Public Use
  Company Number: A0862005A

PATIENT
  Age: 61 Year
  Sex: Female

DRUGS (2)
  1. TYKERB [Suspect]
     Dosage: 1250MG PER DAY
     Route: 065
     Dates: start: 20100430, end: 20100614
  2. HERCEPTIN [Suspect]
     Route: 065
     Dates: start: 20100430, end: 20100507

REACTIONS (3)
  - NAUSEA [None]
  - DIARRHOEA [None]
  - DECREASED APPETITE [None]
